FAERS Safety Report 19321308 (Version 1)
Quarter: 2021Q2

REPORT INFORMATION
  Report Type: Spontaneous
  Country: US (occurrence: US)
  Receive Date: 20210527
  Receipt Date: 20210527
  Transmission Date: 20210717
  Serious: Yes (Hospitalization)
  Sender: FDA-Public Use
  Company Number: US-TEVA-2021-US-1915332

PATIENT
  Sex: Male

DRUGS (12)
  1. AVELOX [Concomitant]
     Active Substance: MOXIFLOXACIN HYDROCHLORIDE
  2. INLYTA [Concomitant]
     Active Substance: AXITINIB
  3. ATORVASATATIN CALCIUM [Concomitant]
  4. B12 ACTIVE [Concomitant]
  5. VITAMIN C [Concomitant]
     Active Substance: ASCORBIC ACID
  6. KLOR?CON [Concomitant]
     Active Substance: POTASSIUM CHLORIDE
  7. TORSEMIDE. [Concomitant]
     Active Substance: TORSEMIDE
  8. VITAMIN D3 [Concomitant]
     Active Substance: CHOLECALCIFEROL
  9. WARFARIN [Suspect]
     Active Substance: WARFARIN
     Route: 065
  10. ELIQUIS [Concomitant]
     Active Substance: APIXABAN
  11. ONDANSETRON ODT [Concomitant]
     Active Substance: ONDANSETRON
     Route: 048
  12. SPIRIVA [Concomitant]
     Active Substance: TIOTROPIUM BROMIDE MONOHYDRATE

REACTIONS (3)
  - Hydronephrosis [Unknown]
  - Contusion [Unknown]
  - Weight decreased [Unknown]
